FAERS Safety Report 4447207-5 (Version None)
Quarter: 2004Q3

REPORT INFORMATION
  Report Type: 
  Country: None (occurrence: None)
  Receive Date: 20040908
  Receipt Date: 20040908
  Transmission Date: 20050211
  Serious: Yes (Death)
  Sender: FDA-Public Use
  Company Number: None

PATIENT
  Age: 64 Year
  Sex: Male
  Weight: 93.7 kg

DRUGS (5)
  1. AVASTIN [Suspect]
     Indication: COLON CANCER METASTATIC
     Dosage: 475 MG Q 2 WEEK IV
     Route: 042
     Dates: start: 20040717, end: 20040825
  2. FOLFOX [Concomitant]
  3. OXALIPLATIN [Concomitant]
  4. LEUCOVORIN CALCIUM [Concomitant]
  5. FLUOROURACIL [Concomitant]

REACTIONS (9)
  - ABDOMINAL PAIN [None]
  - ABSCESS [None]
  - ACUTE MYOCARDIAL INFARCTION [None]
  - ANOXIC ENCEPHALOPATHY [None]
  - CARDIO-RESPIRATORY ARREST [None]
  - CORONARY ARTERY OCCLUSION [None]
  - INFLAMMATION [None]
  - POST PROCEDURAL COMPLICATION [None]
  - RESPIRATORY FAILURE [None]
